FAERS Safety Report 16629279 (Version 1)
Quarter: 2019Q3

REPORT INFORMATION
  Report Type: Spontaneous
  Country: US (occurrence: US)
  Receive Date: 20190725
  Receipt Date: 20190725
  Transmission Date: 20191004
  Serious: Yes (Hospitalization)
  Sender: FDA-Public Use
  Company Number: US-SA-2019SA197846

PATIENT
  Sex: Female
  Weight: 61.2 kg

DRUGS (33)
  1. PLAVIX [Suspect]
     Active Substance: CLOPIDOGREL BISULFATE
     Dosage: 75 MG
     Route: 048
     Dates: start: 20190601, end: 20190601
  2. SODIUM CHLORIDE. [Concomitant]
     Active Substance: SODIUM CHLORIDE
     Dosage: 1000 MG
     Dates: start: 20190610, end: 20190610
  3. PROPOFOL. [Concomitant]
     Active Substance: PROPOFOL
     Dosage: 10 MG
     Dates: start: 20190610, end: 20190610
  4. VOLTAREN [Concomitant]
     Active Substance: DICLOFENAC SODIUM
     Dosage: 1 UNK
     Dates: start: 20180223, end: 20190531
  5. ADALIMUMAB [Concomitant]
     Active Substance: ADALIMUMAB
     Dosage: 40 MG
     Dates: start: 20190208
  6. PAROXETINE. [Concomitant]
     Active Substance: PAROXETINE
     Dosage: 20 MG
     Dates: start: 20190531
  7. MIDAZOLAM [Concomitant]
     Active Substance: MIDAZOLAM HYDROCHLORIDE
     Dosage: 2 MG
     Dates: start: 20190610, end: 20190610
  8. MIDAZOLAM [Concomitant]
     Active Substance: MIDAZOLAM HYDROCHLORIDE
     Dosage: 2 UNK
     Dates: start: 20190603, end: 20190603
  9. LIDOCAINE. [Concomitant]
     Active Substance: LIDOCAINE
     Dosage: 60 MG
     Dates: start: 20190610, end: 20190610
  10. PLAVIX [Suspect]
     Active Substance: CLOPIDOGREL BISULFATE
     Dosage: 75 MG
     Route: 048
     Dates: start: 20190602, end: 20190625
  11. ACETYLSALICYLIC ACID [Suspect]
     Active Substance: ASPIRIN
     Dosage: 100 UNK
     Route: 048
     Dates: start: 20190601, end: 20190601
  12. ONDANSETRON [Concomitant]
     Active Substance: ONDANSETRON
     Dosage: 4 MG
     Dates: start: 20190610, end: 20190610
  13. DEXAMETHASONE. [Concomitant]
     Active Substance: DEXAMETHASONE
     Dosage: 10 MG
     Dates: start: 20190610, end: 20190610
  14. CETACAINE [BENZOCAINE;BUTYL AMINOBENZOATE;TETRACAINE HYDROCHLORIDE] [Concomitant]
     Dosage: 2 UNK
     Dates: start: 20190603, end: 20190603
  15. FENTANYL. [Concomitant]
     Active Substance: FENTANYL
     Dosage: 25 MG
     Dates: start: 20190610, end: 20190611
  16. IOPAMIDOL [Concomitant]
     Active Substance: IOPAMIDOL
     Dosage: 50 MG
     Dates: start: 20190531, end: 20190531
  17. GADOBENATE DIMEGLUMINE [Concomitant]
     Active Substance: GADOBENATE DIMEGLUMINE
     Dosage: 10 MG
     Dates: start: 20190531, end: 20190531
  18. CEPHALEXIN [CEFALEXIN] [Concomitant]
     Active Substance: CEPHALEXIN
     Dosage: 500 MG
     Dates: start: 20190610, end: 20190616
  19. MORPHINE [Concomitant]
     Active Substance: MORPHINE
     Dosage: 4 MG
     Dates: start: 20190610, end: 20190610
  20. ACETYLSALICYLIC ACID [Suspect]
     Active Substance: ASPIRIN
     Dosage: 100 UNK
     Route: 048
     Dates: start: 20190531, end: 20190531
  21. ATENOLOL. [Concomitant]
     Active Substance: ATENOLOL
     Dosage: 100 MG
     Dates: start: 20190604
  22. VENLAFAXINE [Concomitant]
     Active Substance: VENLAFAXINE HYDROCHLORIDE
     Dosage: 75 MG
     Dates: start: 20190604
  23. CLOBETASOL 0.05% [Concomitant]
     Active Substance: CLOBETASOL
     Dosage: 2 G, BID
     Dates: start: 20190610
  24. XYLOCAINE [Concomitant]
     Active Substance: LIDOCAINE HYDROCHLORIDE
     Dosage: 10 MG
     Dates: start: 20190603, end: 20190603
  25. METHOTREXATE. [Concomitant]
     Active Substance: METHOTREXATE
     Dosage: 20 MG
     Dates: start: 20190429
  26. SIMVASTATIN. [Concomitant]
     Active Substance: SIMVASTATIN
     Dosage: 40 MG
     Dates: start: 20190531
  27. ACETYLSALICYLIC ACID [Suspect]
     Active Substance: ASPIRIN
     Dosage: 100 UNK
     Route: 048
     Dates: start: 20190602, end: 20190625
  28. ACETYLSALICYLIC ACID [Suspect]
     Active Substance: ASPIRIN
     Dosage: 100 MG
     Route: 048
     Dates: start: 20190626, end: 20190626
  29. ACETAMINOPHEN. [Concomitant]
     Active Substance: ACETAMINOPHEN
     Dosage: 650 MG
     Dates: start: 20190531
  30. FOLIC ACID. [Concomitant]
     Active Substance: FOLIC ACID
     Dosage: 2 MG
     Dates: start: 20190531
  31. CEFAZOLIN [Concomitant]
     Active Substance: CEFAZOLIN
     Dosage: 1000 MG
     Dates: start: 20190610, end: 20190610
  32. TDAP [Concomitant]
     Active Substance: TETANUS TOXOID, REDUCED DIPHTHERIA TOXOID AND ACELLULAR PERTUSSIS VACCINE ADSORBED, TDAP
     Dosage: 0.500 UNK
     Dates: start: 20190610, end: 20190610
  33. EPHEDRINE. [Concomitant]
     Active Substance: EPHEDRINE
     Dosage: 25 UNK
     Dates: start: 20190610, end: 20190610

REACTIONS (1)
  - Skin laceration [Recovered/Resolved]

NARRATIVE: CASE EVENT DATE: 20190610
